FAERS Safety Report 6676866-1 (Version None)
Quarter: 2010Q2

REPORT INFORMATION
  Report Type: 
  Country: None (occurrence: None)
  Receive Date: 20100412
  Receipt Date: 20100402
  Transmission Date: 20101027
  Serious: Yes (Other)
  Sender: FDA-Public Use
  Company Number: US-ROCHE-695779

PATIENT
  Sex: Male

DRUGS (3)
  1. BEVACIZUMAB [Suspect]
     Route: 042
     Dates: start: 20090301
  2. IRINOTECAN HYDROCHLORIDE [Suspect]
     Dosage: FORM: INFUSION
     Route: 042
     Dates: start: 20090301
  3. IRINOTECAN HYDROCHLORIDE [Suspect]
     Dosage: DOSE REDUCED
     Route: 042
     Dates: start: 20090601

REACTIONS (2)
  - BLOOD ALBUMIN DECREASED [None]
  - BLOOD CALCIUM DECREASED [None]
